FAERS Safety Report 4951802-4 (Version None)
Quarter: 2006Q1

REPORT INFORMATION
  Report Type: 
  Country: None (occurrence: None)
  Receive Date: 20060322
  Receipt Date: 20060322
  Transmission Date: 20060701
  Serious: Yes (Hospitalization)
  Sender: FDA-Public Use
  Company Number: None

PATIENT
  Age: 54 Year
  Sex: Female
  Weight: 92.9874 kg

DRUGS (7)
  1. FOSAMAX PLUS D [Suspect]
     Indication: OSTEOPOROSIS
     Dosage: 70 MG WITH 2800 D [2 DOSE]
     Dates: start: 20060201
  2. METHOTREXATE [Concomitant]
  3. DARVOCET [Concomitant]
  4. PRED [Concomitant]
  5. ATENOLOL [Concomitant]
  6. FLURBIPROFEN [Concomitant]
  7. CA++ WITH D [Concomitant]

REACTIONS (1)
  - PANCREATITIS ACUTE [None]
